FAERS Safety Report 7118329-5 (Version None)
Quarter: 2010Q4

REPORT INFORMATION
  Report Type: 
  Country: None (occurrence: None)
  Receive Date: 20101123
  Receipt Date: 20101117
  Transmission Date: 20110411
  Serious: Yes (Death)
  Sender: FDA-Public Use
  Company Number: PHHY2010US78686

PATIENT
  Age: 62 Year
  Sex: Male
  Weight: 64.399 kg

DRUGS (1)
  1. TOBI [Suspect]
     Indication: CYSTIC FIBROSIS
     Dosage: 300 MG, BID, 28 DAYS ON THEN 28 DAYS OFF
     Dates: start: 20100813

REACTIONS (1)
  - DEATH [None]
